FAERS Safety Report 23010918 (Version 2)
Quarter: 2023Q4

REPORT INFORMATION
  Report Type: Report from Study
  Country: IT (occurrence: IT)
  Receive Date: 20230929
  Receipt Date: 20231110
  Transmission Date: 20240110
  Serious: Yes (Other)
  Sender: FDA-Public Use
  Company Number: IT-002147023-NVSC2023IT208858

PATIENT
  Age: 36 Year
  Sex: Female

DRUGS (2)
  1. SCEMBLIX [Suspect]
     Active Substance: ASCIMINIB HYDROCHLORIDE
     Indication: Product used for unknown indication
     Dosage: UNK
     Route: 065
     Dates: start: 20211007, end: 20230922
  2. SCEMBLIX [Suspect]
     Active Substance: ASCIMINIB HYDROCHLORIDE
     Dosage: UNK UNK, QD (40 EVERY DAY)
     Route: 065

REACTIONS (6)
  - Dysentery [Unknown]
  - Migraine [Unknown]
  - Transaminases abnormal [Unknown]
  - Arthralgia [Unknown]
  - Abdominal pain upper [Unknown]
  - Gamma-glutamyltransferase abnormal [Unknown]
